FAERS Safety Report 4897421-X (Version None)
Quarter: 2006Q1

REPORT INFORMATION
  Report Type: 
  Country: None (occurrence: None)
  Receive Date: 20060130
  Receipt Date: 20060130
  Transmission Date: 20060701
  Serious: Yes (Life-Threatening, Hospitalization, Disabling)
  Sender: FDA-Public Use
  Company Number: None

PATIENT
  Age: 51 Year
  Sex: Female
  Weight: 171.9133 kg

DRUGS (5)
  1. REMERON [Suspect]
     Indication: INSOMNIA
     Dosage: 15MG  AT BEDTIME  PO
     Route: 048
     Dates: start: 20050125, end: 20050216
  2. EFFEXOR [Concomitant]
  3. TEMAZEPAM [Concomitant]
  4. TRAZADONE [Concomitant]
  5. MECLIZINE [Concomitant]

REACTIONS (1)
  - HEPATIC ENCEPHALOPATHY [None]
